FAERS Safety Report 15807907 (Version 1)
Quarter: 2019Q1

REPORT INFORMATION
  Report Type: Spontaneous
  Country: IT (occurrence: IT)
  Receive Date: 20190110
  Receipt Date: 20190110
  Transmission Date: 20190417
  Serious: Yes (Other)
  Sender: FDA-Public Use
  Company Number: IT-OTSUKA-2019_000396

PATIENT
  Age: 7 Year
  Sex: Male
  Weight: 55 kg

DRUGS (3)
  1. ABILIFY [Suspect]
     Active Substance: ARIPIPRAZOLE
     Indication: ABNORMAL BEHAVIOUR
     Dosage: 30 ML, QD
     Route: 048
     Dates: start: 20180101, end: 20181209
  2. LARGACTIL [Suspect]
     Active Substance: CHLORPROMAZINE
     Indication: ABNORMAL BEHAVIOUR
     Dosage: 2 DF, QD
     Route: 048
     Dates: start: 20180101, end: 20181209
  3. DEPAKIN [Suspect]
     Active Substance: VALPROATE SODIUM
     Indication: ABNORMAL BEHAVIOUR
     Dosage: 800 MG, QD
     Route: 048
     Dates: start: 20180101, end: 20181209

REACTIONS (6)
  - Psychomotor hyperactivity [Recovering/Resolving]
  - Increased appetite [Recovering/Resolving]
  - Product use in unapproved indication [Unknown]
  - Aggression [Recovering/Resolving]
  - Weight increased [Recovering/Resolving]
  - Product use issue [Unknown]

NARRATIVE: CASE EVENT DATE: 20180101
